FAERS Safety Report 8329527-7 (Version None)
Quarter: 2012Q2

REPORT INFORMATION
  Report Type: 
  Country: None (occurrence: None)
  Receive Date: 20120502
  Receipt Date: 20120424
  Transmission Date: 20120825
  Serious: Yes (Hospitalization)
  Sender: FDA-Public Use
  Company Number: LB-ABBOTT-12P-093-0929087-00

PATIENT
  Sex: Female
  Weight: 45 kg

DRUGS (6)
  1. REGULAR INSULIN [Concomitant]
     Indication: PRODUCT USED FOR UNKNOWN INDICATION
     Route: 058
  2. HUMIRA [Suspect]
     Indication: CROHN'S DISEASE
     Dosage: LOADING DOSE
     Route: 058
     Dates: start: 20110105
  3. HUMIRA [Suspect]
     Route: 058
     Dates: start: 20120210
  4. HUMIRA [Suspect]
     Route: 058
     Dates: end: 20120210
  5. HUMIRA [Suspect]
     Route: 058
     Dates: end: 20120330
  6. LANTUS [Concomitant]
     Indication: PRODUCT USED FOR UNKNOWN INDICATION
     Route: 058

REACTIONS (4)
  - PYREXIA [None]
  - ABSCESS INTESTINAL [None]
  - DRUG INEFFECTIVE [None]
  - CROHN'S DISEASE [None]
